FAERS Safety Report 7516784-X (Version None)
Quarter: 2011Q2

REPORT INFORMATION
  Report Type: 
  Country: None (occurrence: None)
  Receive Date: 20110601
  Receipt Date: 20110525
  Transmission Date: 20111010
  Serious: Yes (Hospitalization)
  Sender: FDA-Public Use
  Company Number: PHHY2011GB44668

PATIENT
  Sex: Female

DRUGS (8)
  1. PROPOFOL [Suspect]
     Route: 042
  2. ACETAMINOPHEN [Suspect]
     Route: 042
  3. PHOSPHATE-SANDOZ [Suspect]
     Route: 042
  4. FUROSEMIDE [Suspect]
     Route: 042
  5. VANCOMYCIN [Suspect]
     Route: 042
  6. MEROPENEM [Suspect]
     Route: 042
  7. PHENTOLAMINE MESYLATE [Suspect]
     Route: 042
  8. NOREPINEPHRINE BITARTRATE [Suspect]
     Route: 042

REACTIONS (6)
  - ABDOMINAL SEPSIS [None]
  - MALAISE [None]
  - BLOOD PHOSPHORUS DECREASED [None]
  - HYPERTENSION [None]
  - DEVICE RELATED SEPSIS [None]
  - OEDEMA [None]
